FAERS Safety Report 22190564 (Version 3)
Quarter: 2024Q1

REPORT INFORMATION
  Report Type: Spontaneous
  Country: US (occurrence: US)
  Receive Date: 20230410
  Receipt Date: 20240111
  Transmission Date: 20240410
  Serious: No
  Sender: FDA-Public Use
  Company Number: US-BIOGEN-2023BI01198260

PATIENT
  Sex: Female

DRUGS (1)
  1. TYSABRI [Suspect]
     Active Substance: NATALIZUMAB
     Indication: Multiple sclerosis
     Route: 050
     Dates: start: 20210219

REACTIONS (6)
  - Memory impairment [Unknown]
  - Dysgraphia [Unknown]
  - Mental impairment [Unknown]
  - Dry throat [Unknown]
  - Cough [Unknown]
  - Abdominal discomfort [Unknown]
